FAERS Safety Report 12317848 (Version 1)
Quarter: 2016Q2

REPORT INFORMATION
  Report Type: Spontaneous
  Country: DE (occurrence: DE)
  Receive Date: 20160429
  Receipt Date: 20160429
  Transmission Date: 20160815
  Serious: Yes (Other)
  Sender: FDA-Public Use
  Company Number: DE-PFIZER INC-2016150157

PATIENT
  Age: 28 Year
  Sex: Female

DRUGS (1)
  1. TRIGOA [Suspect]
     Active Substance: ETHINYL ESTRADIOL\LEVONORGESTREL
     Indication: CONTRACEPTION
     Dosage: 1 DF, DAILY
     Dates: start: 20100316, end: 20150518

REACTIONS (5)
  - Nasopharyngitis [Unknown]
  - Steatohepatitis [Unknown]
  - Cholangitis sclerosing [Unknown]
  - Hepatic steatosis [Recovered/Resolved]
  - Liver function test increased [Recovered/Resolved]

NARRATIVE: CASE EVENT DATE: 201411
